FAERS Safety Report 8133474-3 (Version None)
Quarter: 2012Q1

REPORT INFORMATION
  Report Type: 
  Country: None (occurrence: None)
  Receive Date: 20120213
  Receipt Date: 20120206
  Transmission Date: 20120608
  Serious: Yes (Other)
  Sender: FDA-Public Use
  Company Number: US-ALLERGAN-1201772US

PATIENT
  Age: 56 Year
  Sex: Female

DRUGS (1)
  1. PRED FORTE [Suspect]
     Indication: POSTOPERATIVE CARE
     Dosage: 2 GTT, QID
     Route: 047
     Dates: start: 20081231, end: 20091001

REACTIONS (2)
  - EYE OPERATION COMPLICATION [None]
  - CATARACT [None]
